FAERS Safety Report 20959121 (Version 2)
Quarter: 2022Q2

REPORT INFORMATION
  Report Type: Report from Study
  Country: JP (occurrence: JP)
  Receive Date: 20220614
  Receipt Date: 20220630
  Transmission Date: 20220721
  Serious: Yes (Other)
  Sender: FDA-Public Use
  Company Number: JP-TEVA-2022-JP-2045352

PATIENT
  Age: 2 Day
  Sex: Female
  Weight: 2.998 kg

DRUGS (2)
  1. DULOXETINE [Suspect]
     Active Substance: DULOXETINE
     Indication: Drug therapy
     Dosage: THE MOTHER RECEIVED DULOXETINE 50 MG ONCE DAILY FOR DEPRESSIVE SYMPTOMS
     Route: 064
  2. QUETIAPINE [Suspect]
     Active Substance: QUETIAPINE
     Indication: Drug therapy
     Dosage: THE MOTHER RECEIVED QUETIAPINE 12.5 MG DAILY
     Route: 064

REACTIONS (2)
  - Drug withdrawal syndrome neonatal [Recovered/Resolved]
  - Foetal exposure during pregnancy [Unknown]
